FAERS Safety Report 6629279-2 (Version None)
Quarter: 2010Q1

REPORT INFORMATION
  Report Type: 
  Country: None (occurrence: None)
  Receive Date: 20100311
  Receipt Date: 20090803
  Transmission Date: 20100710
  Serious: No
  Sender: FDA-Public Use
  Company Number: US-BIOGENIDEC-2009BI024051

PATIENT
  Age: 55 Year
  Sex: Female

DRUGS (2)
  1. AVONEX [Suspect]
     Indication: MULTIPLE SCLEROSIS
     Route: 030
     Dates: start: 20050101, end: 20060101
  2. AVONEX [Suspect]
     Route: 030
     Dates: start: 20060101

REACTIONS (9)
  - ARTHRALGIA [None]
  - DRUG DOSE OMISSION [None]
  - FATIGUE [None]
  - JOINT LOCK [None]
  - MULTIPLE SCLEROSIS RELAPSE [None]
  - MUSCLE SPASMS [None]
  - PERONEAL NERVE PALSY [None]
  - URINARY RETENTION [None]
  - URINARY TRACT INFECTION [None]
